FAERS Safety Report 20303040 (Version 3)
Quarter: 2022Q4

REPORT INFORMATION
  Report Type: Report from Study
  Country: CA (occurrence: CA)
  Receive Date: 20220106
  Receipt Date: 20221013
  Transmission Date: 20230113
  Serious: Yes (Other)
  Sender: FDA-Public Use
  Company Number: CA-GLAXOSMITHKLINE-CA2021266334

PATIENT

DRUGS (2)
  1. MEPOLIZUMAB [Suspect]
     Active Substance: MEPOLIZUMAB
     Indication: Asthma
     Dosage: 100 MG, Z (EVERY 4 WEEKS)
     Route: 058
     Dates: start: 20211203
  2. VAXZEVRIA [Suspect]
     Active Substance: AZD-1222
     Indication: Prophylaxis
     Dosage: UNK VIAL CONTAINING 10 DOSE OF 0.5 ML
     Route: 030
     Dates: start: 20211227

REACTIONS (3)
  - Asthmatic crisis [Unknown]
  - Bronchitis [Unknown]
  - Blood pressure increased [Unknown]

NARRATIVE: CASE EVENT DATE: 20211201
